FAERS Safety Report 5941982-6 (Version None)
Quarter: 2008Q4

REPORT INFORMATION
  Report Type: 
  Country: None (occurrence: None)
  Receive Date: 20081105
  Receipt Date: 20081029
  Transmission Date: 20090506
  Serious: Yes (Other)
  Sender: FDA-Public Use
  Company Number: JP-MERCK-0810USA04433

PATIENT
  Age: 82 Year
  Sex: Female
  Weight: 48 kg

DRUGS (11)
  1. STROMECTOL [Suspect]
     Indication: ACARODERMATITIS
     Route: 048
     Dates: start: 20081010, end: 20081010
  2. LEVOMEPROMAZINE MALEATE [Suspect]
     Route: 048
  3. ADALAT [Concomitant]
     Route: 048
  4. MAGMITT [Concomitant]
     Route: 048
  5. PREDONINE [Concomitant]
     Indication: DERMATITIS EXFOLIATIVE
     Route: 065
     Dates: start: 20081003, end: 20081017
  6. ALLELOCK [Concomitant]
     Route: 048
     Dates: start: 20081003, end: 20081017
  7. LANSOPRAZOLE [Concomitant]
     Route: 048
     Dates: start: 20081003, end: 20081017
  8. ACTONEL [Concomitant]
     Route: 048
     Dates: start: 20081003, end: 20081017
  9. MYSER [Concomitant]
     Route: 061
     Dates: start: 20081003, end: 20081017
  10. HIRUDOID [Concomitant]
     Route: 061
     Dates: start: 20081003
  11. EURAX [Concomitant]
     Route: 061
     Dates: start: 20081010, end: 20081017

REACTIONS (2)
  - DERMATITIS EXFOLIATIVE [None]
  - OVERDOSE [None]
